FAERS Safety Report 13840356 (Version 1)
Quarter: 2017Q3

REPORT INFORMATION
  Report Type: Spontaneous
  Country: BR (occurrence: BR)
  Receive Date: 20170807
  Receipt Date: 20170807
  Transmission Date: 20171127
  Serious: Yes (Other)
  Sender: FDA-Public Use
  Company Number: BR-PFIZER INC-2017336112

PATIENT
  Age: 39 Year
  Sex: Male
  Weight: 57 kg

DRUGS (1)
  1. PREGABALINA TEUTO [Suspect]
     Active Substance: PREGABALIN
     Indication: NEURALGIA
     Dosage: 01 CAPSULE AT NIGHT AFTER THE MEAL
     Dates: start: 20170701, end: 20170727

REACTIONS (2)
  - Cough [Recovered/Resolved]
  - Respiratory tract infection bacterial [Unknown]

NARRATIVE: CASE EVENT DATE: 201707
